FAERS Safety Report 6795585-4 (Version None)
Quarter: 2010Q2

REPORT INFORMATION
  Report Type: 
  Country: None (occurrence: None)
  Receive Date: 20100625
  Receipt Date: 20100616
  Transmission Date: 20101027
  Serious: Yes (Hospitalization, Other)
  Sender: FDA-Public Use
  Company Number: US-ABBOTT-10P-163-0650440-00

PATIENT
  Sex: Male
  Weight: 79.45 kg

DRUGS (11)
  1. HYTRIN [Suspect]
     Indication: HYPERTENSION
     Route: 048
     Dates: start: 19900101, end: 20000101
  2. HYTRIN [Suspect]
     Dates: start: 20000101, end: 20040101
  3. PRINIVIL [Suspect]
     Indication: HYPERTENSION
     Dates: start: 19900101, end: 20000101
  4. CARTIA XT [Suspect]
     Indication: HYPERTENSION
     Dates: start: 19900101, end: 20000101
  5. CARTIA XT [Suspect]
     Dates: start: 20000101
  6. MORPHINE [Concomitant]
     Indication: BACK PAIN
     Route: 048
     Dates: start: 19900101
  7. MORPHINE [Concomitant]
     Indication: BREAKTHROUGH PAIN
     Route: 048
  8. XANAX [Concomitant]
     Indication: ANXIETY
  9. FLEXERIL [Concomitant]
     Indication: MUSCLE SPASMS
  10. AMITRIPTYLINE [Concomitant]
     Indication: NEURALGIA
  11. FIORICET [Concomitant]
     Indication: MIGRAINE

REACTIONS (4)
  - HEPATIC ENZYME INCREASED [None]
  - LOSS OF CONSCIOUSNESS [None]
  - PANCREATITIS [None]
  - POLYARTHRITIS [None]
